FAERS Safety Report 11348106 (Version 1)
Quarter: 2015Q3

REPORT INFORMATION
  Report Type: Spontaneous
  Country: US (occurrence: US)
  Receive Date: 20150803
  Receipt Date: 20150803
  Transmission Date: 20151125
  Serious: No
  Sender: FDA-Public Use
  Company Number: US-ELI_LILLY_AND_COMPANY-US201107003975

PATIENT
  Age: 77 Year
  Sex: Female

DRUGS (2)
  1. ZYPREXA [Suspect]
     Active Substance: OLANZAPINE
     Dosage: 30 MG, QD
  2. ZYPREXA [Suspect]
     Active Substance: OLANZAPINE
     Dosage: 10 MG, BID
     Dates: start: 20080319

REACTIONS (4)
  - Nasopharyngitis [Unknown]
  - Intentional overdose [Unknown]
  - Cardiac disorder [Unknown]
  - Nervousness [Unknown]

NARRATIVE: CASE EVENT DATE: 201106
